FAERS Safety Report 10890786 (Version 1)
Quarter: 2015Q1

REPORT INFORMATION
  Report Type: Spontaneous
  Country: JP (occurrence: JP)
  Receive Date: 20150305
  Receipt Date: 20150305
  Transmission Date: 20150721
  Serious: Yes (Other)
  Sender: FDA-Public Use
  Company Number: JP-009507513-1104USA03932

PATIENT
  Age: 38 Year
  Sex: Female

DRUGS (5)
  1. IMIPENEM AND CILASTATIN [Suspect]
     Active Substance: CILASTATIN SODIUM\IMIPENEM
     Indication: ENDOCARDITIS
     Dosage: DAILY DOSAGE UNKNOWN
     Route: 051
  2. CEFAZOLIN SODIUM. [Concomitant]
     Active Substance: CEFAZOLIN SODIUM
     Indication: ENDOCARDITIS
     Dosage: DAILY DOSAGE UNKNOWN
     Route: 051
  3. TEICOPLANIN [Concomitant]
     Active Substance: TEICOPLANIN
     Indication: ENDOCARDITIS
     Dosage: DAILY DOSAGE UNKNOWN
     Route: 041
  4. GENINAX [Concomitant]
     Active Substance: GARENOXACIN MESYLATE
     Indication: ENDOCARDITIS
     Dosage: DAILY DOSAGE UNKNOWN
     Route: 048
  5. GENTAMICIN SULFATE. [Suspect]
     Active Substance: GENTAMICIN SULFATE
     Indication: ENDOCARDITIS
     Dosage: DAILY DOSAGE UNKNOWN
     Route: 065

REACTIONS (2)
  - Inner ear disorder [Recovering/Resolving]
  - Agranulocytosis [Unknown]
